FAERS Safety Report 13302772 (Version 1)
Quarter: 2017Q1

REPORT INFORMATION
  Report Type: Spontaneous
  Country: US (occurrence: US)
  Receive Date: 20170307
  Receipt Date: 20170307
  Transmission Date: 20170428
  Serious: No
  Sender: FDA-Public Use
  Company Number: PHEH2017US006106

PATIENT
  Sex: Male

DRUGS (1)
  1. HYCAMTIN [Suspect]
     Active Substance: TOPOTECAN HYDROCHLORIDE
     Indication: LUNG NEOPLASM MALIGNANT
     Dosage: 5 MG, QD (EACH21 DAY CYCLE)
     Route: 048
     Dates: start: 20170223, end: 20170227

REACTIONS (4)
  - Nausea [Unknown]
  - Fatigue [Unknown]
  - Muscle twitching [Unknown]
  - Diarrhoea [Unknown]
